FAERS Safety Report 10559037 (Version 1)
Quarter: 2014Q4

REPORT INFORMATION
  Report Type: Spontaneous
  Country: CN (occurrence: CN)
  Receive Date: 20141103
  Receipt Date: 20141103
  Transmission Date: 20150529
  Serious: Yes (Hospitalization)
  Sender: FDA-Public Use
  Company Number: CN-ROCHE-1483973

PATIENT
  Age: 37 Year
  Sex: Male
  Weight: 66 kg

DRUGS (5)
  1. ROCEPHIN [Suspect]
     Active Substance: CEFTRIAXONE SODIUM
     Indication: INFECTION
  2. CLINDAMYCIN PHOSPHATE. [Suspect]
     Active Substance: CLINDAMYCIN PHOSPHATE
     Indication: INFECTION
  3. ROCEPHIN [Suspect]
     Active Substance: CEFTRIAXONE SODIUM
     Indication: PULMONARY CONTUSION
     Route: 041
     Dates: start: 20140310, end: 20140315
  4. AMBROXOL HYDROCHLORIDE L [Concomitant]
     Indication: PULMONARY CONTUSION
     Route: 041
     Dates: start: 20140309, end: 20140313
  5. CLINDAMYCIN PHOSPHATE. [Suspect]
     Active Substance: CLINDAMYCIN PHOSPHATE
     Indication: PULMONARY CONTUSION
     Route: 041
     Dates: start: 20140310, end: 20140315

REACTIONS (1)
  - Hepatic function abnormal [Recovering/Resolving]

NARRATIVE: CASE EVENT DATE: 20140311
